FAERS Safety Report 9782082 (Version 4)
Quarter: 2014Q1

REPORT INFORMATION
  Report Type: Report from Study
  Country: US (occurrence: US)
  Receive Date: 20131226
  Receipt Date: 20140122
  Transmission Date: 20141002
  Serious: Yes (Hospitalization)
  Sender: FDA-Public Use
  Company Number: US-MERCK-1312USA010079

PATIENT
  Age: 51 Year
  Sex: Male
  Weight: 78.92 kg

DRUGS (24)
  1. VORINOSTAT [Suspect]
     Indication: ACUTE MYELOID LEUKAEMIA
     Dosage: 500MG (3X/DAY) PO ON DAYS 1-3 (DAILY DOSE= 1500MG)
     Route: 048
     Dates: start: 20131211, end: 20131213
  2. VORINOSTAT [Suspect]
     Dosage: 500MG (3X/DAY) PO ON DAYS 1-3 (DAILY DOSE= 1500MG)
     Route: 048
     Dates: start: 20131108, end: 20131110
  3. IDARUBICIN [Suspect]
     Indication: ACUTE MYELOID LEUKAEMIA
     Dosage: 8MG/M2/DAY IV OVER 15 MIN ON DAYS 4-5
     Route: 042
     Dates: start: 20131214, end: 20131215
  4. IDARUBICIN [Suspect]
     Dosage: 12MG/M2/DAY IV OVER 15 MIN ON DAYS 4-6
     Route: 042
     Dates: start: 20131111, end: 20131113
  5. CYTARABINE [Suspect]
     Indication: ACUTE MYELOID LEUKAEMIA
     Dosage: 750MG/M2/DAY CONTINUOUS IV INFUSION ON DAYS 4-6
     Route: 042
     Dates: start: 20131214, end: 20131216
  6. CYTARABINE [Suspect]
     Dosage: 1500MG/M2/DAY CONTINUOUS IV INFUSION ON DAYS 4-7
     Route: 042
     Dates: start: 20131111, end: 20131114
  7. ACETAMINOPHEN (+) HYDROCODONE BITARTRATE [Concomitant]
  8. INDOMETHACIN [Concomitant]
     Route: 048
  9. VANCOMYCIN [Concomitant]
  10. CHOLECALCIFEROL [Concomitant]
  11. ERGOCALCIFEROL [Concomitant]
  12. ZOLPIDEM TARTRATE [Concomitant]
  13. ACYCLOVIR [Concomitant]
  14. ALLOPURINOL [Concomitant]
  15. CALCIUM CARBONATE [Concomitant]
  16. DOXYCYCLINE [Concomitant]
  17. FLUCONAZOLE [Concomitant]
  18. PANTOPRAZOLE [Concomitant]
  19. TAMSULOSIN HYDROCHLORIDE [Concomitant]
  20. ALTEPLASE [Concomitant]
  21. LORAZEPAM [Concomitant]
  22. MEROPENEM [Concomitant]
  23. SODIUM CHLORIDE [Concomitant]
  24. ONDANSETRON HYDROCHLORIDE [Concomitant]

REACTIONS (3)
  - Arthralgia [Recovering/Resolving]
  - Arthralgia [Recovered/Resolved]
  - Colitis [Recovered/Resolved with Sequelae]
